FAERS Safety Report 19058596 (Version 11)
Quarter: 2025Q2

REPORT INFORMATION
  Report Type: Spontaneous
  Country: AT (occurrence: AT)
  Receive Date: 20210325
  Receipt Date: 20250521
  Transmission Date: 20250717
  Serious: Yes (Hospitalization, Other)
  Sender: NOVARTIS
  Company Number: PHHY2018AT143522

PATIENT
  Age: 62 Year
  Sex: Female
  Weight: 80 kg

DRUGS (156)
  1. LAPATINIB [Suspect]
     Active Substance: LAPATINIB
     Indication: HER2 positive breast cancer
     Dosage: 1000 MG, QD
     Route: 048
     Dates: start: 20181227, end: 20190116
  2. LAPATINIB [Suspect]
     Active Substance: LAPATINIB
     Dosage: 750 MG, QD
     Route: 048
     Dates: start: 20190116, end: 20190206
  3. CAPECITABINE [Suspect]
     Active Substance: CAPECITABINE
     Indication: HER2 positive breast cancer
     Dosage: 3500 MG, QD (DOSE ON: 04/SEP/2018, 10/SEP/2018, 27/MAY/2019)
     Route: 048
     Dates: start: 20180904, end: 20180910
  4. CAPECITABINE [Suspect]
     Active Substance: CAPECITABINE
     Dosage: 1000 MG, BID
     Route: 048
     Dates: start: 20190617, end: 201909
  5. CAPECITABINE [Suspect]
     Active Substance: CAPECITABINE
     Route: 048
     Dates: start: 20190527
  6. CAPECITABINE [Suspect]
     Active Substance: CAPECITABINE
     Route: 048
  7. CAPECITABINE [Suspect]
     Active Substance: CAPECITABINE
     Dosage: 1000 MG, QMO
     Route: 048
     Dates: start: 20190527, end: 201906
  8. VINORELBINE [Suspect]
     Active Substance: VINORELBINE TARTRATE
     Indication: HER2 positive breast cancer
     Route: 048
     Dates: start: 20170306, end: 20170530
  9. VINORELBINE [Suspect]
     Active Substance: VINORELBINE TARTRATE
     Route: 048
     Dates: start: 20170627
  10. VINORELBINE [Suspect]
     Active Substance: VINORELBINE TARTRATE
     Route: 048
     Dates: start: 20170530
  11. VINORELBINE [Suspect]
     Active Substance: VINORELBINE TARTRATE
     Route: 048
     Dates: start: 20170627, end: 20170718
  12. ADO-TRASTUZUMAB EMTANSINE [Suspect]
     Active Substance: ADO-TRASTUZUMAB EMTANSINE
     Indication: Breast cancer metastatic
     Dosage: 480 MG, TIW (DOSE ON 21 NOV 2017, 04 SEP 2018, 23 OCT 2018, 27 MAY 2019)
     Route: 042
     Dates: start: 20170306
  13. ADO-TRASTUZUMAB EMTANSINE [Suspect]
     Active Substance: ADO-TRASTUZUMAB EMTANSINE
     Indication: HER2 positive breast cancer
     Dosage: 3.6 MG/M2, TIW (DOSE ON 24/APR/2018, 15/MAY/2018, 13/AUG/2018)
     Route: 042
     Dates: start: 20171212, end: 20180816
  14. ADO-TRASTUZUMAB EMTANSINE [Suspect]
     Active Substance: ADO-TRASTUZUMAB EMTANSINE
     Dosage: 3.3 MG/M2, TIW (MOST RECENT DOSE PRIOR TO THE EVENT)
     Route: 042
     Dates: start: 20180515
  15. ADO-TRASTUZUMAB EMTANSINE [Suspect]
     Active Substance: ADO-TRASTUZUMAB EMTANSINE
     Dosage: 3.3 MG/M2, TIW (MOST RECENT DOSE PRIOR TO THE EVENT)
     Route: 042
     Dates: start: 20180515
  16. ADO-TRASTUZUMAB EMTANSINE [Suspect]
     Active Substance: ADO-TRASTUZUMAB EMTANSINE
     Route: 065
  17. ADO-TRASTUZUMAB EMTANSINE [Suspect]
     Active Substance: ADO-TRASTUZUMAB EMTANSINE
     Route: 065
  18. ADO-TRASTUZUMAB EMTANSINE [Suspect]
     Active Substance: ADO-TRASTUZUMAB EMTANSINE
     Route: 065
  19. ADO-TRASTUZUMAB EMTANSINE [Suspect]
     Active Substance: ADO-TRASTUZUMAB EMTANSINE
     Dosage: 3.6 MG/M2, TIW (MOST RECENT DOSE PRIOR TO THE EVENT: 15/MAY/2018)
     Route: 042
     Dates: start: 20180424
  20. ADO-TRASTUZUMAB EMTANSINE [Suspect]
     Active Substance: ADO-TRASTUZUMAB EMTANSINE
     Dosage: 480 MG, TIW (DOSE ON 21 NOV 2017, 04 SEP 2018, 23 OCT 2018, 27 MAY 2019)
     Route: 042
     Dates: start: 20170306
  21. ADO-TRASTUZUMAB EMTANSINE [Suspect]
     Active Substance: ADO-TRASTUZUMAB EMTANSINE
     Dosage: 10.8 MG/M2, QW (DOSE ON 24/APR/2018, 15/MAY/2018)
     Route: 042
     Dates: start: 20171212, end: 20180424
  22. ADO-TRASTUZUMAB EMTANSINE [Suspect]
     Active Substance: ADO-TRASTUZUMAB EMTANSINE
     Dosage: 3.3 MG/M2, TIW (MOST RECENT DOSE PRIOR TO THE EVENT)
     Route: 042
     Dates: start: 20180515
  23. ADO-TRASTUZUMAB EMTANSINE [Suspect]
     Active Substance: ADO-TRASTUZUMAB EMTANSINE
     Route: 042
     Dates: start: 20180424
  24. TRASTUZUMAB [Suspect]
     Active Substance: TRASTUZUMAB
     Indication: Breast cancer metastatic
     Dosage: 1440 MG, QW (DOSE ON 21/NOV/2017, 04/SEP/2018, 23/OCT/2018, 27/MAY/2019)
     Route: 042
     Dates: start: 20170306
  25. TRASTUZUMAB [Suspect]
     Active Substance: TRASTUZUMAB
     Indication: HER2 positive breast cancer
     Dosage: 3.6 MG/M2, TIW
     Route: 065
     Dates: start: 20171212, end: 20180424
  26. TRASTUZUMAB [Suspect]
     Active Substance: TRASTUZUMAB
     Dosage: 600 MG, TIW
     Route: 042
     Dates: end: 20190617
  27. TRASTUZUMAB [Suspect]
     Active Substance: TRASTUZUMAB
     Dosage: 480 MG, TIW
     Route: 042
     Dates: start: 20170306, end: 20171121
  28. TRASTUZUMAB [Suspect]
     Active Substance: TRASTUZUMAB
     Route: 042
     Dates: start: 20190527
  29. TRASTUZUMAB [Suspect]
     Active Substance: TRASTUZUMAB
     Route: 042
     Dates: start: 20181023
  30. TRASTUZUMAB [Suspect]
     Active Substance: TRASTUZUMAB
     Route: 042
     Dates: start: 20180904
  31. TRASTUZUMAB [Suspect]
     Active Substance: TRASTUZUMAB
     Dosage: 3.3 MG/M2, TIW
     Route: 065
     Dates: start: 20180515
  32. TRASTUZUMAB [Suspect]
     Active Substance: TRASTUZUMAB
     Route: 042
     Dates: start: 20171121
  33. TRASTUZUMAB [Suspect]
     Active Substance: TRASTUZUMAB
     Dosage: 600 MG, TIW
     Route: 042
     Dates: start: 20180904, end: 20180904
  34. TRASTUZUMAB [Suspect]
     Active Substance: TRASTUZUMAB
     Dosage: 600 MG, TIW
     Route: 042
     Dates: start: 20181023, end: 20190226
  35. TRASTUZUMAB [Suspect]
     Active Substance: TRASTUZUMAB
     Dosage: 600 MG, TIW
     Route: 042
     Dates: start: 20190527, end: 20190617
  36. TRASTUZUMAB [Suspect]
     Active Substance: TRASTUZUMAB
     Dosage: 600 MG, TIW
     Route: 042
     Dates: end: 20190617
  37. TRASTUZUMAB [Suspect]
     Active Substance: TRASTUZUMAB
     Dosage: 600 MG, TIW
     Route: 042
     Dates: start: 20190322, end: 20190322
  38. TRASTUZUMAB [Suspect]
     Active Substance: TRASTUZUMAB
     Dosage: 600 MG, TIW
     Route: 042
     Dates: start: 20190507, end: 20190507
  39. PERTUZUMAB [Suspect]
     Active Substance: PERTUZUMAB
     Indication: HER2 positive breast cancer
     Dosage: 420 MG, TIW (DOSE ON: 21/NOV/2017)
     Route: 042
     Dates: start: 20170306, end: 20171121
  40. HERCEPTIN [Suspect]
     Active Substance: TRASTUZUMAB
     Indication: HER2 positive breast cancer
     Dosage: 480 MG, TIW
     Route: 042
     Dates: start: 20170306, end: 20171121
  41. HERCEPTIN [Suspect]
     Active Substance: TRASTUZUMAB
     Indication: Product used for unknown indication
     Dosage: 600 MG, TIW
     Route: 058
     Dates: start: 20181023, end: 20190226
  42. HERCEPTIN [Suspect]
     Active Substance: TRASTUZUMAB
     Dosage: 600 MG, TIW
     Route: 058
     Dates: start: 20190527, end: 20190617
  43. HERCEPTIN [Suspect]
     Active Substance: TRASTUZUMAB
     Dosage: 600 MG, TIW
     Route: 058
     Dates: start: 20190507, end: 20190507
  44. HERCEPTIN [Suspect]
     Active Substance: TRASTUZUMAB
     Dosage: 600 MG, TIW
     Route: 058
     Dates: start: 20190322, end: 20190322
  45. HERCEPTIN [Suspect]
     Active Substance: TRASTUZUMAB
     Dosage: 600 MG, TIW
     Route: 058
     Dates: start: 20180904, end: 20180904
  46. HERCEPTIN [Suspect]
     Active Substance: TRASTUZUMAB
     Route: 065
  47. HERCEPTIN [Suspect]
     Active Substance: TRASTUZUMAB
     Dosage: 480 MG, Q3W
     Route: 042
     Dates: start: 20171121
  48. HERCEPTIN [Suspect]
     Active Substance: TRASTUZUMAB
     Dosage: 480 MG, Q3W
     Route: 042
     Dates: start: 20180904
  49. HERCEPTIN [Suspect]
     Active Substance: TRASTUZUMAB
     Dosage: 480 MG, Q3W
     Route: 042
     Dates: start: 20181023
  50. HERCEPTIN [Suspect]
     Active Substance: TRASTUZUMAB
     Dosage: 480 MG, Q3W
     Route: 042
     Dates: start: 20170527
  51. PERJETA [Suspect]
     Active Substance: PERTUZUMAB
     Indication: HER2 positive breast cancer
     Dosage: 420 MG, TIW
     Route: 042
     Dates: start: 20170306, end: 20171121
  52. XELODA [Suspect]
     Active Substance: CAPECITABINE
     Indication: HER2 positive breast cancer
     Route: 048
     Dates: start: 20190527, end: 201906
  53. XELODA [Suspect]
     Active Substance: CAPECITABINE
     Route: 048
     Dates: start: 20190617, end: 201909
  54. XELODA [Suspect]
     Active Substance: CAPECITABINE
     Dosage: 3500 MG, QD
     Route: 048
     Dates: start: 20180904, end: 20180910
  55. XELODA [Suspect]
     Active Substance: CAPECITABINE
     Dosage: 3500 MG, QD
     Route: 048
     Dates: start: 20190527
  56. XELODA [Suspect]
     Active Substance: CAPECITABINE
     Route: 048
     Dates: start: 20180904, end: 20180910
  57. KADCYLA [Suspect]
     Active Substance: ADO-TRASTUZUMAB EMTANSINE
     Indication: HER2 positive breast cancer
     Dosage: 3.6 MG/M2, TIW (DOSE ON 24/APR/2018, 15/MAY/2018, 13/AUG/2018)
     Route: 042
     Dates: start: 20171212
  58. KADCYLA [Suspect]
     Active Substance: ADO-TRASTUZUMAB EMTANSINE
     Dosage: 3.3 MG/M2, TIW (MOST RECENT DOSE PRIOR TO THE EVENT)
     Route: 042
     Dates: start: 20180515
  59. KADCYLA [Suspect]
     Active Substance: ADO-TRASTUZUMAB EMTANSINE
     Dosage: 3.6 MG/M2, TIW
     Route: 042
     Dates: end: 20180424
  60. NAVELBINE [Suspect]
     Active Substance: VINORELBINE TARTRATE
     Indication: HER2 positive breast cancer
     Route: 048
     Dates: start: 20170306, end: 20170530
  61. NAVELBINE [Suspect]
     Active Substance: VINORELBINE TARTRATE
     Route: 048
     Dates: start: 20170627, end: 20170718
  62. DEXAMETHASONE [Concomitant]
     Active Substance: DEXAMETHASONE
     Indication: Product used for unknown indication
     Route: 065
     Dates: start: 20170829, end: 20180813
  63. DEXAMETHASONE [Concomitant]
     Active Substance: DEXAMETHASONE
     Route: 065
     Dates: start: 20181013
  64. DEXAMETHASONE [Concomitant]
     Active Substance: DEXAMETHASONE
     Route: 065
     Dates: start: 20190215, end: 20190215
  65. EMEND [Concomitant]
     Active Substance: APREPITANT
     Indication: Product used for unknown indication
     Route: 065
     Dates: start: 20180127, end: 20180813
  66. EMEND [Concomitant]
     Active Substance: APREPITANT
     Route: 065
     Dates: start: 20180128, end: 20180814
  67. EMEND [Concomitant]
     Active Substance: APREPITANT
     Route: 065
     Dates: start: 20180129, end: 20180815
  68. ZYRTEC [Concomitant]
     Active Substance: CETIRIZINE HYDROCHLORIDE
     Indication: Pruritus
     Route: 065
     Dates: start: 20170327
  69. ZYRTEC [Concomitant]
     Active Substance: CETIRIZINE HYDROCHLORIDE
     Route: 065
  70. KYTRIL [Concomitant]
     Active Substance: GRANISETRON HYDROCHLORIDE
     Indication: Product used for unknown indication
     Route: 065
     Dates: start: 20171212, end: 20181013
  71. Paspertin [Concomitant]
     Indication: Product used for unknown indication
     Route: 065
     Dates: start: 20171212, end: 20190907
  72. Daflon [Concomitant]
     Indication: HER2 positive breast cancer
     Route: 065
     Dates: end: 20190907
  73. Daflon [Concomitant]
     Route: 065
     Dates: end: 20190907
  74. Daflon [Concomitant]
     Route: 065
     Dates: end: 20190907
  75. PANTOPRAZOLE SODIUM [Concomitant]
     Active Substance: PANTOPRAZOLE SODIUM
     Indication: Product used for unknown indication
     Route: 065
     Dates: start: 20170302
  76. LYRICA [Concomitant]
     Active Substance: PREGABALIN
     Indication: Back pain
     Route: 065
     Dates: start: 20181227, end: 20190226
  77. LYRICA [Concomitant]
     Active Substance: PREGABALIN
     Route: 065
  78. TRAZODONE HYDROCHLORIDE [Concomitant]
     Active Substance: TRAZODONE HYDROCHLORIDE
     Indication: Product used for unknown indication
     Route: 065
     Dates: start: 20181215, end: 20190226
  79. Temesta [Concomitant]
     Indication: Back pain
     Route: 065
     Dates: start: 20190226
  80. ZOLPIDEM [Concomitant]
     Active Substance: ZOLPIDEM TARTRATE
     Indication: Product used for unknown indication
     Route: 065
     Dates: start: 20190215, end: 20190315
  81. MIRTAZAPINE [Concomitant]
     Active Substance: MIRTAZAPINE
     Indication: Product used for unknown indication
     Route: 065
     Dates: start: 20190315, end: 20190907
  82. MIRTAZAPINE [Concomitant]
     Active Substance: MIRTAZAPINE
     Route: 065
     Dates: start: 20190315
  83. Tenoxstar [Concomitant]
     Indication: Product used for unknown indication
     Route: 065
  84. Tenoxstar [Concomitant]
     Route: 065
  85. Tenoxstar [Concomitant]
     Route: 065
  86. Sucralan [Concomitant]
     Indication: Product used for unknown indication
     Route: 065
     Dates: end: 20190907
  87. Sucralan [Concomitant]
     Route: 065
     Dates: end: 20190907
  88. Sucralan [Concomitant]
     Route: 065
     Dates: start: 20190907
  89. Sucralan [Concomitant]
     Route: 065
     Dates: start: 20190907
  90. BAMBUTEROL HYDROCHLORIDE [Concomitant]
     Active Substance: BAMBUTEROL HYDROCHLORIDE
     Indication: Product used for unknown indication
     Route: 065
  91. BAMBUTEROL HYDROCHLORIDE [Concomitant]
     Active Substance: BAMBUTEROL HYDROCHLORIDE
     Route: 065
  92. BAMBUTEROL HYDROCHLORIDE [Concomitant]
     Active Substance: BAMBUTEROL HYDROCHLORIDE
     Route: 065
  93. Kalioral [Concomitant]
     Indication: Product used for unknown indication
     Route: 065
  94. VENLAFAXINE HYDROCHLORIDE [Concomitant]
     Active Substance: VENLAFAXINE HYDROCHLORIDE
     Indication: Product used for unknown indication
     Route: 065
     Dates: start: 20190315, end: 20190907
  95. BUPRENORPHINE [Concomitant]
     Active Substance: BUPRENORPHINE
     Indication: Product used for unknown indication
     Route: 065
  96. BUPRENORPHINE [Concomitant]
     Active Substance: BUPRENORPHINE
     Route: 065
  97. BUPRENORPHINE [Concomitant]
     Active Substance: BUPRENORPHINE
     Route: 065
  98. Paracodin [Concomitant]
     Indication: Dyspnoea
     Route: 065
     Dates: start: 20190509
  99. Paracodin [Concomitant]
     Route: 065
     Dates: start: 20190510
  100. AUGMENTIN [Concomitant]
     Active Substance: AMOXICILLIN\CLAVULANATE POTASSIUM
     Indication: Respiratory tract infection
     Route: 065
     Dates: start: 20190509, end: 20190516
  101. Cortison [Concomitant]
     Indication: Respiratory tract infection
     Route: 065
     Dates: start: 20190615, end: 20190615
  102. DOXYCYCLINE [Concomitant]
     Active Substance: DOXYCYCLINE
     Indication: Respiratory tract infection
     Route: 065
     Dates: start: 20190502, end: 20190509
  103. EDOXABAN TOSYLATE [Concomitant]
     Active Substance: EDOXABAN TOSYLATE
     Indication: Pulmonary embolism
     Route: 065
     Dates: start: 20190315, end: 20190907
  104. EDOXABAN TOSYLATE [Concomitant]
     Active Substance: EDOXABAN TOSYLATE
     Route: 065
     Dates: start: 20190315
  105. LACTULOSE [Concomitant]
     Active Substance: LACTULOSE
     Indication: Product used for unknown indication
     Route: 065
     Dates: start: 20171212, end: 20190907
  106. Novalgin [Concomitant]
     Indication: Back pain
     Route: 065
     Dates: start: 20170327, end: 20191003
  107. Novalgin [Concomitant]
     Indication: Hepatic pain
     Route: 065
     Dates: start: 20171212, end: 20190907
  108. Novalgin [Concomitant]
     Indication: Respiratory tract infection
     Route: 065
     Dates: start: 20190315, end: 20190907
  109. Novalgin [Concomitant]
     Indication: Back pain
     Route: 065
     Dates: start: 20190509, end: 20190509
  110. Novalgin [Concomitant]
     Indication: Back pain
  111. HYDROMORPHONE HYDROCHLORIDE [Concomitant]
     Active Substance: HYDROMORPHONE HYDROCHLORIDE
     Indication: Back pain
     Route: 065
     Dates: start: 20180628, end: 20190226
  112. HYDROMORPHONE HYDROCHLORIDE [Concomitant]
     Active Substance: HYDROMORPHONE HYDROCHLORIDE
     Route: 065
     Dates: start: 20181227, end: 20190907
  113. LASIX [Concomitant]
     Active Substance: FUROSEMIDE
     Indication: Product used for unknown indication
     Route: 065
     Dates: end: 20190907
  114. BISOPROLOL FUMARATE [Concomitant]
     Active Substance: BISOPROLOL FUMARATE
     Indication: Product used for unknown indication
     Route: 065
     Dates: end: 20190907
  115. BISOPROLOL FUMARATE [Concomitant]
     Active Substance: BISOPROLOL FUMARATE
     Route: 065
     Dates: end: 20190907
  116. BISOPROLOL FUMARATE [Concomitant]
     Active Substance: BISOPROLOL FUMARATE
     Route: 065
     Dates: start: 20190907
  117. BISOPROLOL FUMARATE [Concomitant]
     Active Substance: BISOPROLOL FUMARATE
     Route: 065
     Dates: end: 20190907
  118. BISOPROLOL FUMARATE [Concomitant]
     Active Substance: BISOPROLOL FUMARATE
     Route: 065
     Dates: end: 20190907
  119. BISOPROLOL FUMARATE [Concomitant]
     Active Substance: BISOPROLOL FUMARATE
     Route: 065
     Dates: end: 20190907
  120. BISOPROLOL FUMARATE [Concomitant]
     Active Substance: BISOPROLOL FUMARATE
     Route: 065
     Dates: end: 20190907
  121. BISOPROLOL FUMARATE [Concomitant]
     Active Substance: BISOPROLOL FUMARATE
     Route: 065
     Dates: end: 20190907
  122. Solu dacortin [Concomitant]
     Indication: Chills
     Route: 065
  123. ACETAMINOPHEN [Concomitant]
     Active Substance: ACETAMINOPHEN
     Indication: Product used for unknown indication
     Route: 065
  124. DIMETHINDENE [Concomitant]
     Active Substance: DIMETHINDENE
     Indication: Chills
     Route: 065
  125. BUPRENORPHINE HYDROCHLORIDE [Concomitant]
     Active Substance: BUPRENORPHINE HYDROCHLORIDE
     Indication: Product used for unknown indication
     Route: 065
  126. BUPRENORPHINE HYDROCHLORIDE [Concomitant]
     Active Substance: BUPRENORPHINE HYDROCHLORIDE
     Route: 065
     Dates: start: 20190908
  127. BUPRENORPHINE HYDROCHLORIDE [Concomitant]
     Active Substance: BUPRENORPHINE HYDROCHLORIDE
     Route: 065
  128. MORPHINE [Concomitant]
     Active Substance: MORPHINE
     Indication: Product used for unknown indication
     Route: 065
  129. DIAMOX SEQUELS [Concomitant]
     Active Substance: ACETAZOLAMIDE
     Indication: Product used for unknown indication
     Route: 065
  130. DIAMOX SEQUELS [Concomitant]
     Active Substance: ACETAZOLAMIDE
     Route: 065
  131. DIAMOX SEQUELS [Concomitant]
     Active Substance: ACETAZOLAMIDE
     Route: 065
  132. RANITIDINE HYDROCHLORIDE [Concomitant]
     Active Substance: RANITIDINE HYDROCHLORIDE
     Indication: Chills
     Route: 065
  133. DEXAMETHASONE [Concomitant]
     Active Substance: DEXAMETHASONE
     Indication: Product used for unknown indication
     Route: 065
     Dates: start: 20190215, end: 20190215
  134. DEXAMETHASONE [Concomitant]
     Active Substance: DEXAMETHASONE
     Route: 065
     Dates: start: 20190215, end: 20190907
  135. DEXAMETHASONE [Concomitant]
     Active Substance: DEXAMETHASONE
     Route: 065
     Dates: start: 20170829, end: 20181013
  136. LAPATINIB DITOSYLATE [Concomitant]
     Active Substance: LAPATINIB DITOSYLATE
     Indication: Product used for unknown indication
     Dosage: 1000 MG, QD
     Route: 048
     Dates: start: 20181227, end: 20190116
  137. LAPATINIB DITOSYLATE [Concomitant]
     Active Substance: LAPATINIB DITOSYLATE
     Dosage: 750 MG, QD
     Route: 048
     Dates: start: 20190116, end: 20190206
  138. Mannit [Concomitant]
     Indication: Product used for unknown indication
     Route: 065
  139. Mannit [Concomitant]
     Route: 065
  140. Mannit [Concomitant]
     Route: 065
  141. MORPHINE [Concomitant]
     Active Substance: MORPHINE
     Indication: Product used for unknown indication
     Route: 065
  142. MORPHINE [Concomitant]
     Active Substance: MORPHINE
     Route: 065
  143. MORPHINE [Concomitant]
     Active Substance: MORPHINE
     Route: 065
  144. AMOXICILLIN\CLAVULANATE POTASSIUM [Concomitant]
     Active Substance: AMOXICILLIN\CLAVULANATE POTASSIUM
     Indication: Respiratory tract infection
     Route: 065
     Dates: start: 20190509, end: 20190516
  145. LOVENOX [Concomitant]
     Active Substance: ENOXAPARIN SODIUM
     Indication: Product used for unknown indication
     Route: 065
     Dates: start: 20180126, end: 20180208
  146. DICLOFENAC SODIUM\ORPHENADRINE CITRATE [Concomitant]
     Active Substance: DICLOFENAC SODIUM\ORPHENADRINE CITRATE
     Indication: Product used for unknown indication
     Route: 065
  147. DIFLUCAN [Concomitant]
     Active Substance: FLUCONAZOLE
     Indication: Product used for unknown indication
     Route: 065
  148. Morapid [Concomitant]
     Indication: Product used for unknown indication
     Route: 065
  149. DIHYDROCODEINE [Concomitant]
     Active Substance: DIHYDROCODEINE
     Indication: Product used for unknown indication
     Route: 065
  150. ENOXAPARIN SODIUM [Concomitant]
     Active Substance: ENOXAPARIN SODIUM
     Indication: Product used for unknown indication
     Route: 065
  151. FUROSEMIDE [Concomitant]
     Active Substance: FUROSEMIDE
     Indication: Pulmonary embolism
     Route: 065
  152. FUROSEMIDE [Concomitant]
     Active Substance: FUROSEMIDE
     Route: 065
     Dates: start: 20190315, end: 20190907
  153. FUROSEMIDE [Concomitant]
     Active Substance: FUROSEMIDE
     Route: 065
     Dates: start: 20170907
  154. BISOPROLOL FUMARATE [Concomitant]
     Active Substance: BISOPROLOL FUMARATE
     Indication: Product used for unknown indication
     Route: 065
     Dates: end: 20190907
  155. SUCRALFATE [Concomitant]
     Active Substance: SUCRALFATE
     Indication: Product used for unknown indication
     Route: 065
     Dates: end: 20190907
  156. AMOXICILLIN\CLAVULANATE POTASSIUM [Concomitant]
     Active Substance: AMOXICILLIN\CLAVULANATE POTASSIUM
     Indication: Respiratory tract infection
     Route: 065
     Dates: start: 20190509, end: 20190516

REACTIONS (23)
  - Vomiting [Recovered/Resolved]
  - Vomiting [Recovered/Resolved]
  - Dyspnoea exertional [Not Recovered/Not Resolved]
  - Underdose [Unknown]
  - Blindness [Recovered/Resolved with Sequelae]
  - Headache [Recovered/Resolved]
  - Headache [Unknown]
  - Diarrhoea [Recovered/Resolved]
  - Polyneuropathy [Recovered/Resolved]
  - Vertigo [Recovered/Resolved]
  - Vertigo [Not Recovered/Not Resolved]
  - Angina pectoris [Recovered/Resolved]
  - Headache [Recovered/Resolved]
  - Headache [Recovered/Resolved]
  - Polyneuropathy [Not Recovered/Not Resolved]
  - Visual impairment [Not Recovered/Not Resolved]
  - Vomiting [Recovered/Resolved]
  - Cough [Recovered/Resolved]
  - Epistaxis [Recovered/Resolved]
  - Nausea [Recovered/Resolved]
  - Myalgia [Recovered/Resolved]
  - Bone pain [Recovered/Resolved]
  - Chills [Recovered/Resolved]

NARRATIVE: CASE EVENT DATE: 20170306
